FAERS Safety Report 16989510 (Version 2)
Quarter: 2020Q2

REPORT INFORMATION
  Report Type: Spontaneous
  Country: BE (occurrence: BE)
  Receive Date: 20191104
  Receipt Date: 20200624
  Transmission Date: 20200713
  Serious: Yes (Hospitalization)
  Sender: FDA-Public Use
  Company Number: BE-CELGENEUS-BEL-20191011184

PATIENT
  Age: 64 Year
  Sex: Female

DRUGS (9)
  1. TAXOL [Concomitant]
     Active Substance: PACLITAXEL
     Indication: OVARIAN CANCER
     Dosage: DOSE NOT PROVIDED
     Route: 065
     Dates: start: 2007
  2. CARBOPLATIN. [Concomitant]
     Active Substance: CARBOPLATIN
     Dosage: DOSE NOT PROVIDED
     Route: 065
     Dates: start: 2015
  3. AVASTIN [Concomitant]
     Active Substance: BEVACIZUMAB
     Indication: OVARIAN CANCER
     Dosage: DOSE NOT PROVIDED
     Route: 065
     Dates: start: 2015
  4. TAXOL [Concomitant]
     Active Substance: PACLITAXEL
     Dosage: DOSE NOT PROVIDED
     Route: 065
     Dates: start: 2015
  5. ABRAXANE [Suspect]
     Active Substance: PACLITAXEL
     Indication: OVARIAN CANCER
     Dosage: 140 MILLIGRAM/SQ. METER
     Route: 041
     Dates: start: 20190821, end: 20191016
  6. CARBOPLATIN. [Concomitant]
     Active Substance: CARBOPLATIN
     Indication: OVARIAN CANCER
     Dosage: DOSE NOT PROVIDED
     Route: 065
     Dates: start: 2007
  7. TAXOL [Concomitant]
     Active Substance: PACLITAXEL
     Dosage: DOSE NOT PROVIDED
     Route: 065
     Dates: start: 201902
  8. CARBOPLATIN. [Concomitant]
     Active Substance: CARBOPLATIN
     Dosage: DOSE NOT PROVIDED
     Route: 065
     Dates: start: 201902
  9. AVASTIN [Concomitant]
     Active Substance: BEVACIZUMAB
     Dosage: DOSE NOT PROVIDED
     Route: 065
     Dates: start: 201902

REACTIONS (1)
  - Tissue infiltration [Not Recovered/Not Resolved]

NARRATIVE: CASE EVENT DATE: 20191011
